FAERS Safety Report 14213940 (Version 2)
Quarter: 2018Q1

REPORT INFORMATION
  Report Type: Spontaneous
  Country: CO (occurrence: CO)
  Receive Date: 20171122
  Receipt Date: 20180112
  Transmission Date: 20180508
  Serious: Yes (Hospitalization)
  Sender: FDA-Public Use
  Company Number: CO-PFIZER INC-2017498941

PATIENT
  Age: 11 Year
  Sex: Female

DRUGS (4)
  1. GENOTROPIN [Suspect]
     Active Substance: SOMATROPIN
     Indication: GROWTH FAILURE
     Dosage: 1.8 MG, UNK
     Route: 058
     Dates: start: 201605
  2. GENOTROPIN [Suspect]
     Active Substance: SOMATROPIN
     Indication: BODY HEIGHT BELOW NORMAL
  3. GENOTROPIN [Suspect]
     Active Substance: SOMATROPIN
     Indication: BRONCHIAL OBSTRUCTION
  4. GENOTROPIN [Suspect]
     Active Substance: SOMATROPIN
     Indication: GASTROOESOPHAGEAL REFLUX DISEASE

REACTIONS (2)
  - Lung disorder [Not Recovered/Not Resolved]
  - Product use in unapproved indication [Unknown]
